FAERS Safety Report 8210243-7 (Version None)
Quarter: 2012Q1

REPORT INFORMATION
  Report Type: 
  Country: None (occurrence: None)
  Receive Date: 20120314
  Receipt Date: 20110302
  Transmission Date: 20120608
  Serious: No
  Sender: FDA-Public Use
  Company Number: US-ASTRAZENECA-2011SE11932

PATIENT
  Age: 55 Year
  Sex: Female

DRUGS (6)
  1. QUINAPRIL [Concomitant]
  2. GLIMEPIRIDE [Concomitant]
  3. METFORMIN [Concomitant]
  4. CRESTOR [Concomitant]
  5. NIFEDIPINE [Suspect]
     Route: 048
  6. METOPROLOL SUCCINATE EXTENDED RELEASE [Suspect]
     Route: 048

REACTIONS (2)
  - PALPITATIONS [None]
  - CARDIAC MURMUR [None]
